FAERS Safety Report 9373273 (Version 1)
Quarter: 2013Q2

REPORT INFORMATION
  Report Type: Spontaneous
  Country: FR (occurrence: FR)
  Receive Date: 20130627
  Receipt Date: 20130627
  Transmission Date: 20140414
  Serious: Yes (Other)
  Sender: FDA-Public Use
  Company Number: FR-BRISTOL-MYERS SQUIBB COMPANY-19035187

PATIENT
  Sex: 0

DRUGS (1)
  1. COAPROVEL [Suspect]

REACTIONS (1)
  - Shock [Unknown]
